FAERS Safety Report 20876093 (Version 1)
Quarter: 2022Q2

REPORT INFORMATION
  Report Type: Spontaneous
  Country: US (occurrence: US)
  Receive Date: 20220526
  Receipt Date: 20220526
  Transmission Date: 20220721
  Serious: No
  Sender: FDA-Public Use
  Company Number: US-NOVEN PHARMACEUTICALS, INC.-2021-NOV-US003564

PATIENT
  Sex: Female

DRUGS (3)
  1. DAYTRANA [Suspect]
     Active Substance: METHYLPHENIDATE
     Indication: Attention deficit hyperactivity disorder
     Dosage: 10MG/ 9 HOURS
     Route: 062
  2. DAYTRANA [Suspect]
     Active Substance: METHYLPHENIDATE
     Indication: Executive dysfunction
     Dosage: 20MG/9 HOURS, UNKNOWN
     Route: 062
     Dates: start: 2011
  3. DAYTRANA [Suspect]
     Active Substance: METHYLPHENIDATE
     Indication: Dyslexia

REACTIONS (2)
  - Agitation [Recovered/Resolved]
  - Off label use [Not Recovered/Not Resolved]
